FAERS Safety Report 20172738 (Version 1)
Quarter: 2021Q4

REPORT INFORMATION
  Report Type: Spontaneous
  Country: US (occurrence: US)
  Receive Date: 20211211
  Receipt Date: 20211211
  Transmission Date: 20220303
  Serious: Yes (Other)
  Sender: FDA-Public Use
  Company Number: US-MSNLABS-2021MSNLIT00666

PATIENT

DRUGS (1)
  1. ATORVASTATIN [Suspect]
     Active Substance: ATORVASTATIN
     Indication: Product used for unknown indication
     Dosage: QHS
     Route: 048

REACTIONS (2)
  - Immune-mediated myositis [Unknown]
  - Autoimmune hepatitis [Unknown]
